FAERS Safety Report 5522323-5 (Version None)
Quarter: 2007Q4

REPORT INFORMATION
  Report Type: 
  Country: None (occurrence: None)
  Receive Date: 20071120
  Receipt Date: 20071113
  Transmission Date: 20080405
  Serious: Yes (Other)
  Sender: FDA-Public Use
  Company Number: US-ASTRAZENECA-2007UW23615

PATIENT
  Age: 60 Year
  Sex: Female
  Weight: 87.3 kg

DRUGS (13)
  1. CRESTOR [Suspect]
     Indication: HYPERLIPIDAEMIA
     Route: 048
     Dates: start: 20070424, end: 20070716
  2. FENOFIBRATE [Concomitant]
  3. CLONAZEPAM [Concomitant]
  4. ASPIRIN [Concomitant]
  5. BENADRYL [Concomitant]
  6. DOSS [Concomitant]
     Dosage: 1-3 X/DAY
  7. RANITIDINE HCL [Concomitant]
  8. ZOLOFT [Concomitant]
  9. PREVACID [Concomitant]
  10. LEVOXYL [Concomitant]
  11. CARBIDOPA W/LEVODOPA [Concomitant]
     Dosage: 25/100
  12. ZETIA [Concomitant]
  13. LOVASTATIN [Concomitant]
     Indication: HYPERLIPIDAEMIA

REACTIONS (4)
  - BLOOD CREATINE PHOSPHOKINASE INCREASED [None]
  - MUSCLE SPASMS [None]
  - PAIN IN EXTREMITY [None]
  - RENAL FAILURE [None]
